FAERS Safety Report 20201854 (Version 4)
Quarter: 2022Q1

REPORT INFORMATION
  Report Type: Report from Study
  Country: TH (occurrence: TH)
  Receive Date: 20211217
  Receipt Date: 20220121
  Transmission Date: 20220424
  Serious: Yes (Other)
  Sender: FDA-Public Use
  Company Number: TH-GILEAD-2021-0561260

PATIENT
  Age: 0 Year
  Sex: Male
  Weight: 3.107 kg

DRUGS (14)
  1. BICTEGRAVIR\EMTRICITABINE\TENOFOVIR ALAFENAMIDE [Suspect]
     Active Substance: BICTEGRAVIR\EMTRICITABINE\TENOFOVIR ALAFENAMIDE
     Indication: HIV infection
     Dosage: UNK
     Route: 064
  2. FOLIC ACID [Concomitant]
     Active Substance: FOLIC ACID
  3. CALCIUM CARBONATE [Concomitant]
     Active Substance: CALCIUM CARBONATE
  4. VITAMIN B COMPLEX [Concomitant]
     Active Substance: CYANOCOBALAMIN\DEXPANTHENOL\NIACINAMIDE\PYRIDOXINE HYDROCHLORIDE\RIBOFLAVIN 5^-PHOSPHATE SODIUM\THIA
  5. FERROUS FUMARATE\FOLIC ACID\IODINE [Concomitant]
     Active Substance: FERROUS FUMARATE\FOLIC ACID\IODINE
  6. COVID-19 VACCINE [Concomitant]
  7. INFLUENZA VIRUS VACCINE [Concomitant]
     Active Substance: INFLUENZA VIRUS VACCINE
  8. INSULIN PORK\INSULIN PURIFIED PORK [Concomitant]
     Active Substance: INSULIN PORK\INSULIN PURIFIED PORK
  9. ACTRAPID [Concomitant]
     Active Substance: INSULIN HUMAN
  10. BOOSTAGEN [Concomitant]
  11. ACETAMINOPHEN [Concomitant]
     Active Substance: ACETAMINOPHEN
  12. AMPICILLIN [Concomitant]
     Active Substance: AMPICILLIN
     Indication: Prophylaxis
     Dosage: UNK
     Route: 064
     Dates: start: 20211129, end: 20211129
  13. AMPICILLIN [Concomitant]
     Active Substance: AMPICILLIN
     Dosage: UNK
     Route: 042
     Dates: start: 20211129, end: 20211203
  14. SYNTOCINON [Concomitant]
     Active Substance: OXYTOCIN
     Indication: Prophylaxis
     Dosage: UNK
     Dates: start: 20211129, end: 20211129

REACTIONS (4)
  - Respiratory distress [Recovered/Resolved]
  - Subgaleal haematoma [Recovered/Resolved]
  - Premature baby [Recovered/Resolved]
  - Foetal exposure during pregnancy [Recovered/Resolved]

NARRATIVE: CASE EVENT DATE: 20210322
